FAERS Safety Report 22637942 (Version 1)
Quarter: 2023Q2

REPORT INFORMATION
  Report Type: Spontaneous
  Country: CN (occurrence: CN)
  Receive Date: 20230626
  Receipt Date: 20230626
  Transmission Date: 20230721
  Serious: Yes (Other)
  Sender: FDA-Public Use
  Company Number: CN-ABBVIE-5303038

PATIENT
  Age: 66 Year
  Sex: Female
  Weight: 62 kg

DRUGS (1)
  1. VENETOCLAX [Suspect]
     Active Substance: VENETOCLAX
     Indication: Acute leukaemia
     Dosage: 200 MILLIGRAM
     Route: 048
     Dates: start: 20230519, end: 20230523

REACTIONS (6)
  - Agranulocytosis [Recovering/Resolving]
  - Mouth ulceration [Unknown]
  - Haemorrhage [Unknown]
  - Depression [Unknown]
  - Wound complication [Unknown]
  - Pyrexia [Unknown]

NARRATIVE: CASE EVENT DATE: 20230527
